FAERS Safety Report 18189072 (Version 1)
Quarter: 2020Q3

REPORT INFORMATION
  Report Type: Spontaneous
  Country: US (occurrence: US)
  Receive Date: 20200824
  Receipt Date: 20200824
  Transmission Date: 20201103
  Serious: Yes (Other)
  Sender: FDA-Public Use
  Company Number: US-GLAXOSMITHKLINE-US2020GSK167128

PATIENT
  Age: 69 Year
  Sex: Male

DRUGS (5)
  1. RASAGILINE. [Suspect]
     Active Substance: RASAGILINE
     Indication: PARKINSON^S DISEASE
     Dosage: 1 MG DAILY
  2. CARBIDOPA WITH LEVODOPA [Suspect]
     Active Substance: CARBIDOPA\LEVODOPA
     Indication: PARKINSON^S DISEASE
     Dosage: 275 MG, Z ((25/250 MG) 5 TIMES A DAY)
  3. ROPINIROLE. [Suspect]
     Active Substance: ROPINIROLE
     Indication: PARKINSON^S DISEASE
     Dosage: 2 MG, Z (5 TIMES A DAY)
  4. ENTACAPONE. [Suspect]
     Active Substance: ENTACAPONE
     Indication: PARKINSON^S DISEASE
     Dosage: 200 MG, Z (5 TIMES A DAY)
  5. CARBIDOPA WITH LEVODOPA [Suspect]
     Active Substance: CARBIDOPA\LEVODOPA
     Dosage: 250 MG, Z (CR (50/200 MG) AT BEDTIME)

REACTIONS (2)
  - Insomnia [Recovered/Resolved]
  - Hallucination, visual [Recovering/Resolving]
